FAERS Safety Report 17767681 (Version 3)
Quarter: 2020Q2

REPORT INFORMATION
  Report Type: Report from Study
  Country: IN (occurrence: IN)
  Receive Date: 20200511
  Receipt Date: 20200608
  Transmission Date: 20200714
  Serious: Yes (Other)
  Sender: FDA-Public Use
  Company Number: NVSC2020IN097785

PATIENT
  Age: 35 Year
  Sex: Female
  Weight: 67 kg

DRUGS (1)
  1. GALVUS MET [Suspect]
     Active Substance: METFORMIN HYDROCHLORIDE\VILDAGLIPTIN
     Indication: DIABETES MELLITUS
     Dosage: 1 DF, BID (1-0-1)  (METFORMIN 500MG, VILDAGLIPTIN 50MG) (SINCE PAST 3 MONTHS)
     Route: 048

REACTIONS (10)
  - Neuropathy peripheral [Not Recovered/Not Resolved]
  - Head discomfort [Unknown]
  - Dizziness [Unknown]
  - Fatigue [Unknown]
  - Gastric pH decreased [Unknown]
  - Abdominal discomfort [Unknown]
  - Hypoglycaemia [Unknown]
  - Skin fissures [Unknown]
  - Hypoaesthesia [Not Recovered/Not Resolved]
  - Hyperglycaemia [Unknown]

NARRATIVE: CASE EVENT DATE: 20200402
